FAERS Safety Report 5825092-4 (Version None)
Quarter: 2008Q3

REPORT INFORMATION
  Report Type: 
  Country: None (occurrence: None)
  Receive Date: 20080729
  Receipt Date: 20080714
  Transmission Date: 20090109
  Serious: Yes (Hospitalization)
  Sender: FDA-Public Use
  Company Number: ES-JNJFOC-20080704009

PATIENT
  Age: 86 Year
  Sex: Male

DRUGS (3)
  1. RISPERDAL [Suspect]
     Indication: AGITATION
     Route: 048
  2. PANTOPRAZOL [Concomitant]
     Indication: DUODENAL ULCER HAEMORRHAGE
  3. URBAL [Concomitant]
     Indication: DUODENAL ULCER HAEMORRHAGE

REACTIONS (2)
  - GASTROINTESTINAL HAEMORRHAGE [None]
  - NEUTROPENIA [None]
